FAERS Safety Report 18858067 (Version 1)
Quarter: 2021Q1

REPORT INFORMATION
  Report Type: Spontaneous
  Country: NL (occurrence: NL)
  Receive Date: 20210208
  Receipt Date: 20210208
  Transmission Date: 20210420
  Serious: Yes (Death)
  Sender: FDA-Public Use
  Company Number: NL-ROCHE-2763426

PATIENT
  Age: 65 Year
  Sex: Male

DRUGS (1)
  1. OCREVUS [Suspect]
     Active Substance: OCRELIZUMAB
     Indication: PRIMARY PROGRESSIVE MULTIPLE SCLEROSIS
     Dosage: 27/JAN SECOND DOSE (2ND HALF): NOT RECEIVED
     Route: 042
     Dates: start: 20210113

REACTIONS (6)
  - Dyspnoea [Unknown]
  - Respiratory rate increased [Unknown]
  - Myocardial infarction [Fatal]
  - Pulmonary embolism [Fatal]
  - Chest discomfort [Unknown]
  - Arrhythmia [Fatal]

NARRATIVE: CASE EVENT DATE: 20210126
